FAERS Safety Report 11379835 (Version 1)
Quarter: 2015Q3

REPORT INFORMATION
  Report Type: Spontaneous
  Country: US (occurrence: None)
  Receive Date: 20150813
  Receipt Date: 20150813
  Transmission Date: 20151125
  Serious: Yes (Life-Threatening, Other)
  Sender: FDA-Public Use
  Company Number: None

PATIENT
  Age: 64 Year
  Sex: Male
  Weight: 94.8 kg

DRUGS (4)
  1. GUMMY VITAMINS FOR MEN [Concomitant]
  2. ATENELOL [Concomitant]
     Active Substance: ATENOLOL
  3. LISINOPRIL. [Concomitant]
     Active Substance: LISINOPRIL
  4. HYDROCHLORTHIAZIDE [Suspect]
     Active Substance: HYDROCHLOROTHIAZIDE
     Indication: HYPERTENSION
     Dosage: 1 PILL
     Route: 048
     Dates: start: 20150531, end: 20150812

REACTIONS (2)
  - Drug administration error [None]
  - Contusion [None]

NARRATIVE: CASE EVENT DATE: 20150624
